FAERS Safety Report 6418063-0 (Version None)
Quarter: 2009Q4

REPORT INFORMATION
  Report Type: 
  Country: None (occurrence: None)
  Receive Date: 20091026
  Receipt Date: 20091013
  Transmission Date: 20100525
  Serious: Yes (Other)
  Sender: FDA-Public Use
  Company Number: ADR37992009

PATIENT
  Age: 59 Year
  Sex: Male

DRUGS (6)
  1. SIMVASTATIN [Suspect]
     Indication: HYPERCHOLESTEROLAEMIA
     Dosage: 1 DF DAY ORAL
     Route: 048
     Dates: start: 20080103, end: 20090110
  2. BENDROFLUMETHIAZIDE [Concomitant]
  3. DOCOSAHEXAENOIC ACID [Concomitant]
  4. EICOSAPENTAENOIC ACID [Concomitant]
  5. EZETIMIBE [Concomitant]
  6. LEVOTHYROXINE SODIUM [Concomitant]

REACTIONS (2)
  - AGGRESSION [None]
  - DEPRESSION [None]
